FAERS Safety Report 17214237 (Version 7)
Quarter: 2020Q1

REPORT INFORMATION
  Report Type: Spontaneous
  Country: US (occurrence: US)
  Receive Date: 20191230
  Receipt Date: 20200311
  Transmission Date: 20200409
  Serious: Yes (Hospitalization, Other)
  Sender: FDA-Public Use
  Company Number: US-PFIZER INC-2019559277

PATIENT
  Age: 72 Year
  Sex: Female
  Weight: 58.5 kg

DRUGS (3)
  1. PREMPRO [Suspect]
     Active Substance: ESTROGENS, CONJUGATED\MEDROXYPROGESTERONE ACETATE
     Indication: OSTEOPOROSIS
     Dosage: 1 DF, 1X/DAY [0.3MG/1.5MG TABLET]
     Route: 048
  2. PREMPRO [Suspect]
     Active Substance: ESTROGENS, CONJUGATED\MEDROXYPROGESTERONE ACETATE
     Indication: MENOPAUSE
     Dosage: 1 DF, 1X/DAY (0.3MG/1.5 MG, ONE A DAY)
  3. HYDROCHLOROTHIAZIDE. [Concomitant]
     Active Substance: HYDROCHLOROTHIAZIDE
     Indication: BLOOD PRESSURE ABNORMAL
     Dosage: 25 MG, 1X/DAY

REACTIONS (5)
  - Emotional disorder [Recovered/Resolved]
  - Feeling abnormal [Unknown]
  - Nasopharyngitis [Not Recovered/Not Resolved]
  - Rotator cuff syndrome [Unknown]
  - Dysgraphia [Unknown]

NARRATIVE: CASE EVENT DATE: 20191221
